FAERS Safety Report 17690997 (Version 2)
Quarter: 2020Q2

REPORT INFORMATION
  Report Type: Spontaneous
  Country: US (occurrence: US)
  Receive Date: 20200422
  Receipt Date: 20200518
  Transmission Date: 20200714
  Serious: No
  Sender: FDA-Public Use
  Company Number: US-ASTRAZENECA-2020SE48879

PATIENT
  Sex: Female
  Weight: 45.4 kg

DRUGS (3)
  1. LOSARTAN. [Concomitant]
     Active Substance: LOSARTAN
     Indication: BLOOD PRESSURE ABNORMAL
  2. SIMVASTATIN. [Concomitant]
     Active Substance: SIMVASTATIN
     Indication: BLOOD CHOLESTEROL ABNORMAL
  3. PULMICORT FLEXHALER [Suspect]
     Active Substance: BUDESONIDE
     Dosage: 180 MCG 120 DOSES, 2 PUFFS AT NIGHT
     Route: 055
     Dates: start: 20071005

REACTIONS (4)
  - Hypertension [Unknown]
  - Device defective [Unknown]
  - Blood cholesterol increased [Unknown]
  - Intentional device misuse [Unknown]
